FAERS Safety Report 7937226-6 (Version None)
Quarter: 2011Q4

REPORT INFORMATION
  Report Type: 
  Country: None (occurrence: None)
  Receive Date: 20111123
  Receipt Date: 20111115
  Transmission Date: 20120403
  Serious: Yes (Other)
  Sender: FDA-Public Use
  Company Number: JP-GLAXOSMITHKLINE-B0757137A

PATIENT
  Age: 40 Year
  Sex: Female

DRUGS (2)
  1. ANTIDEPRESSANT [Concomitant]
     Indication: BIPOLAR I DISORDER
  2. LAMICTAL [Suspect]
     Indication: BIPOLAR I DISORDER
     Route: 048
     Dates: end: 20101001

REACTIONS (4)
  - RASH [None]
  - OEDEMA [None]
  - OEDEMA PERIPHERAL [None]
  - SKIN DISCOLOURATION [None]
